FAERS Safety Report 6824069-X (Version None)
Quarter: 2010Q3

REPORT INFORMATION
  Report Type: 
  Country: None (occurrence: None)
  Receive Date: 20100708
  Receipt Date: 20100630
  Transmission Date: 20110219
  Serious: Yes (Other)
  Sender: FDA-Public Use
  Company Number: JP-SANOFI-AVENTIS-2009SA004883

PATIENT
  Age: 82 Year
  Sex: Female

DRUGS (3)
  1. PLAVIX [Suspect]
     Indication: LACUNAR INFARCTION
     Route: 048
     Dates: start: 20080605
  2. ARICEPT [Concomitant]
     Route: 048
     Dates: start: 20090217
  3. SERTRALINE HYDROCHLORIDE [Concomitant]
     Route: 048
     Dates: start: 20080515, end: 20090217

REACTIONS (2)
  - ANAEMIA [None]
  - FEMORAL NECK FRACTURE [None]
